FAERS Safety Report 7605577-0 (Version None)
Quarter: 2011Q3

REPORT INFORMATION
  Report Type: 
  Country: None (occurrence: None)
  Receive Date: 20110705
  Receipt Date: 20110617
  Transmission Date: 20111222
  Serious: Yes (Life-Threatening, Hospitalization, Other)
  Sender: FDA-Public Use
  Company Number: 2011MA007721

PATIENT
  Age: 64 Year
  Sex: Female

DRUGS (2)
  1. FEVERALL [Suspect]
     Indication: OVERDOSE
     Dosage: 50 G,
  2. CODEINE SULFATE [Suspect]
     Indication: OVERDOSE
     Dosage: 5 G;

REACTIONS (9)
  - ANALGESIC DRUG LEVEL ABOVE THERAPEUTIC [None]
  - HEPATIC NECROSIS [None]
  - HEPATIC FAILURE [None]
  - RENAL FAILURE [None]
  - BLOOD LACTIC ACID INCREASED [None]
  - DIALYSIS [None]
  - COMA SCALE ABNORMAL [None]
  - LOSS OF CONSCIOUSNESS [None]
  - HYPOTHERMIA [None]
